FAERS Safety Report 24157497 (Version 2)
Quarter: 2025Q1

REPORT INFORMATION
  Report Type: Report from Study
  Country: CA (occurrence: CA)
  Receive Date: 20240731
  Receipt Date: 20250115
  Transmission Date: 20250408
  Serious: Yes (Other)
  Sender: TAKEDA
  Company Number: CA-TAKEDA-2023TUS063868

PATIENT
  Sex: Male

DRUGS (4)
  1. VEDOLIZUMAB [Suspect]
     Active Substance: VEDOLIZUMAB
     Indication: Crohn^s disease
  2. VEDOLIZUMAB [Suspect]
     Active Substance: VEDOLIZUMAB
  3. VEDOLIZUMAB [Suspect]
     Active Substance: VEDOLIZUMAB
  4. TAMSULOSIN [Concomitant]
     Active Substance: TAMSULOSIN
     Indication: Prostatic disorder

REACTIONS (5)
  - Arrhythmia [Recovered/Resolved]
  - Asthenia [Recovered/Resolved]
  - Blood pressure decreased [Recovered/Resolved]
  - Dizziness [Recovered/Resolved]
  - Tachycardia [Recovered/Resolved]
